FAERS Safety Report 16189190 (Version 1)
Quarter: 2019Q2

REPORT INFORMATION
  Report Type: Spontaneous
  Country: US (occurrence: US)
  Receive Date: 20190412
  Receipt Date: 20190412
  Transmission Date: 20190711
  Serious: Yes (Other)
  Sender: FDA-Public Use
  Company Number: US-BRISTOL-MYERS SQUIBB COMPANY-BMS-2019-034066

PATIENT
  Sex: Female

DRUGS (1)
  1. ELIQUIS [Suspect]
     Active Substance: APIXABAN
     Indication: PULMONARY EMBOLISM
     Dosage: 5 MILLIGRAM, BID
     Route: 048
     Dates: start: 20181123

REACTIONS (11)
  - Dizziness [Unknown]
  - Syncope [Unknown]
  - Kidney infection [Unknown]
  - Right ventricular enlargement [Unknown]
  - Right atrial enlargement [Unknown]
  - Cystitis [Unknown]
  - Headache [Unknown]
  - Weight decreased [Unknown]
  - Nausea [Unknown]
  - Liver injury [Unknown]
  - Product dose omission [Unknown]
